FAERS Safety Report 8284399-4 (Version None)
Quarter: 2012Q2

REPORT INFORMATION
  Report Type: 
  Country: None (occurrence: None)
  Receive Date: 20120413
  Receipt Date: 20111128
  Transmission Date: 20120825
  Serious: No
  Sender: FDA-Public Use
  Company Number: US-ASTRAZENECA-2011SE72438

PATIENT

DRUGS (5)
  1. LISINOPRIL [Suspect]
     Route: 048
  2. HYDROCHLOROTHIAZIDE [Concomitant]
  3. IMITREX [Concomitant]
     Route: 048
  4. NEXIUM [Suspect]
     Route: 048
  5. FIORICET [Concomitant]
     Route: 048

REACTIONS (13)
  - DYSLIPIDAEMIA [None]
  - HYPERCALCAEMIA [None]
  - UMBILICAL HERNIA [None]
  - ULCER [None]
  - INAPPROPRIATE SCHEDULE OF DRUG ADMINISTRATION [None]
  - HYPERTENSION [None]
  - ABDOMINAL PAIN [None]
  - GASTROOESOPHAGEAL REFLUX DISEASE [None]
  - BARRETT'S OESOPHAGUS [None]
  - MIGRAINE [None]
  - ABDOMINAL PAIN UPPER [None]
  - IMPAIRED GASTRIC EMPTYING [None]
  - DEPRESSION [None]
